FAERS Safety Report 8452571-6 (Version None)
Quarter: 2012Q2

REPORT INFORMATION
  Report Type: 
  Country: None (occurrence: None)
  Receive Date: 20120620
  Receipt Date: 20120417
  Transmission Date: 20120825
  Serious: No
  Sender: FDA-Public Use
  Company Number: US-VERTEX PHARMACEUTICALS INC.-AE-2012-005584

PATIENT
  Sex: Female
  Weight: 106.6 kg

DRUGS (3)
  1. RIBASPHERE [Concomitant]
     Indication: HEPATITIS C
     Dates: start: 20120301
  2. PEGASYS [Concomitant]
     Indication: HEPATITIS C
     Dates: start: 20120301
  3. INCIVEK [Suspect]
     Indication: HEPATITIS C
     Route: 048
     Dates: start: 20120301

REACTIONS (6)
  - VOMITING [None]
  - DEPRESSION [None]
  - HYPOAESTHESIA [None]
  - DIZZINESS [None]
  - CONFUSIONAL STATE [None]
  - NAUSEA [None]
